FAERS Safety Report 8538005 (Version 4)
Quarter: 2013Q2

REPORT INFORMATION
  Report Type: Spontaneous
  Country: US (occurrence: None)
  Receive Date: 20120315
  Receipt Date: 20120703
  Transmission Date: 20140414
  Serious: No
  Sender: FDA-Public Use
  Company Number: PHHY2011US14831

PATIENT
  Age: 45 Year
  Sex: Female

DRUGS (7)
  1. GILENYA [Suspect]
     Indication: MULTIPLE SCLEROSIS
     Route: 048
     Dates: start: 20110105, end: 20110211
  2. PREDNISONE (PREDNISONE) [Concomitant]
  3. XANAX (ALPRAZOLAM) [Concomitant]
  4. LORTAB (HYDROCODONE BITARTRATE, PARACETAMOL) [Concomitant]
  5. LIDODERM (LIDOCAINE) [Concomitant]
  6. LYRICA (PREGABALIN) [Concomitant]
  7. VITAMIN D (ERGOCALCIFEROL) [Concomitant]

REACTIONS (5)
  - ARTHRALGIA [None]
  - ANXIETY [None]
  - DYSPNOEA [None]
  - BACK PAIN [None]
  - Drug ineffective [None]
